FAERS Safety Report 7292641-1 (Version None)
Quarter: 2011Q1

REPORT INFORMATION
  Report Type: 
  Country: None (occurrence: None)
  Receive Date: 20110215
  Receipt Date: 20110210
  Transmission Date: 20110831
  Serious: Yes (Life-Threatening, Hospitalization, Other)
  Sender: FDA-Public Use
  Company Number: DE-JNJFOC-20110200447

PATIENT
  Sex: Male
  Weight: 86 kg

DRUGS (5)
  1. SEROQUEL [Suspect]
     Indication: BIPOLAR DISORDER
     Route: 048
     Dates: start: 20080101, end: 20110128
  2. VALPROAT [Concomitant]
     Indication: BIPOLAR DISORDER
     Route: 048
     Dates: start: 20070101
  3. HALDOL [Suspect]
     Indication: BIPOLAR DISORDER
     Route: 065
  4. HALDOL [Suspect]
     Route: 065
  5. LEVOMEPROMAZIN [Concomitant]
     Route: 048
     Dates: start: 20050101

REACTIONS (2)
  - ANGIOEDEMA [None]
  - APATHY [None]
